FAERS Safety Report 6139804-6 (Version None)
Quarter: 2009Q2

REPORT INFORMATION
  Report Type: 
  Country: None (occurrence: None)
  Receive Date: 20090401
  Receipt Date: 20090327
  Transmission Date: 20091009
  Serious: Yes (Disabling, Other)
  Sender: FDA-Public Use
  Company Number: B0565892A

PATIENT
  Sex: Male

DRUGS (4)
  1. RELENZA [Suspect]
     Indication: INFLUENZA
     Dosage: 10MG TWICE PER DAY
     Route: 055
     Dates: start: 20090311, end: 20090313
  2. CALONAL [Concomitant]
     Route: 048
     Dates: start: 20090311, end: 20090311
  3. MUCODYNE [Concomitant]
     Indication: PRODUCTIVE COUGH
     Dosage: 1500MG PER DAY
     Route: 048
     Dates: start: 20090311, end: 20090313
  4. MUCOSAL [Concomitant]
     Indication: PRODUCTIVE COUGH
     Dosage: 45MG PER DAY
     Route: 048
     Dates: start: 20090311, end: 20090313

REACTIONS (1)
  - VISUAL ACUITY REDUCED [None]
